FAERS Safety Report 4553240-5 (Version None)
Quarter: 2005Q1

REPORT INFORMATION
  Report Type: 
  Country: None (occurrence: None)
  Receive Date: 20050113
  Receipt Date: 20041230
  Transmission Date: 20050727
  Serious: Yes (Hospitalization)
  Sender: FDA-Public Use
  Company Number: 2004-0007285

PATIENT
  Age: 41 Year
  Sex: Male
  Weight: 98 kg

DRUGS (4)
  1. VIREAD [Suspect]
     Dosage: ORAL
     Route: 048
     Dates: start: 20040401
  2. NORVIR [Suspect]
     Dosage: ORAL
     Route: 048
     Dates: start: 20040401
  3. EPIVIR [Suspect]
     Dosage: ORAL
     Route: 048
     Dates: start: 20040420
  4. REYATAZ [Suspect]
     Dosage: ORAL
     Route: 048
     Dates: start: 20040420

REACTIONS (3)
  - DIABETES MELLITUS [None]
  - GLYCOSYLATED HAEMOGLOBIN INCREASED [None]
  - HYPERBILIRUBINAEMIA [None]
